FAERS Safety Report 23690508 (Version 1)
Quarter: 2024Q2

REPORT INFORMATION
  Report Type: Report from Study
  Country: KW (occurrence: KW)
  Receive Date: 20240401
  Receipt Date: 20240401
  Transmission Date: 20240715
  Serious: Yes (Hospitalization, Other)
  Sender: FDA-Public Use
  Company Number: KW-ABBVIE-5699942

PATIENT
  Age: 32 Year
  Sex: Female

DRUGS (2)
  1. RINVOQ [Suspect]
     Active Substance: UPADACITINIB
     Indication: Colitis ulcerative
     Dosage: 30 MILLIGRAM
     Route: 048
     Dates: start: 20230928, end: 20240324
  2. RINVOQ [Suspect]
     Active Substance: UPADACITINIB
     Indication: Colitis ulcerative
     Dosage: 15 MILLIGRAM
     Route: 048
     Dates: start: 20240325

REACTIONS (1)
  - Bile duct stone [Recovered/Resolved]

NARRATIVE: CASE EVENT DATE: 20231201
